FAERS Safety Report 7347819-5 (Version None)
Quarter: 2011Q1

REPORT INFORMATION
  Report Type: 
  Country: None (occurrence: None)
  Receive Date: 20110311
  Receipt Date: 20110228
  Transmission Date: 20110831
  Serious: Yes (Death, Congenital Anomaly)
  Sender: FDA-Public Use
  Company Number: US-MERCK-1010USA02734B1

PATIENT

DRUGS (7)
  1. VITAMINS (UNSPECIFIED) [Concomitant]
     Route: 064
  2. NASACORT [Concomitant]
     Route: 065
     Dates: start: 20060101
  3. CITALOPRAM [Concomitant]
     Route: 065
     Dates: start: 20060101
  4. SINGULAIR [Suspect]
     Indication: ASTHMA
     Route: 064
     Dates: start: 20090101
  5. CETIRIZINE HYDROCHLORIDE [Concomitant]
     Route: 064
  6. CYCLOSPORINE [Concomitant]
     Route: 064
  7. PROVENTIL [Concomitant]
     Route: 064

REACTIONS (6)
  - GASTROSCHISIS [None]
  - DEATH [None]
  - SINGLE UMBILICAL ARTERY [None]
  - DRUG EXPOSURE DURING PREGNANCY [None]
  - ECTOPIA CORDIS [None]
  - FOETAL DISORDER [None]
